FAERS Safety Report 7913731-3 (Version None)
Quarter: 2011Q4

REPORT INFORMATION
  Report Type: 
  Country: None (occurrence: None)
  Receive Date: 20111115
  Receipt Date: 20111108
  Transmission Date: 20120403
  Serious: Yes (Hospitalization, Other)
  Sender: FDA-Public Use
  Company Number: CA-UCBSA-031206

PATIENT
  Age: 56 Year
  Sex: Female
  Weight: 88 kg

DRUGS (8)
  1. CIMZIA [Suspect]
     Indication: RHEUMATOID ARTHRITIS
     Dosage: NUMBER OF INTAKES, 3 LOADING DOSE. EXP DATE:??/NOV/2012
     Route: 058
     Dates: start: 20110309
  2. METFORMIN HCL [Concomitant]
     Indication: DIABETES MELLITUS
     Route: 048
  3. RAMIPRIL [Concomitant]
     Indication: HYPERTENSION
     Route: 048
  4. FOLIC ACID [Concomitant]
     Indication: SUPPLEMENTATION THERAPY
     Route: 048
  5. HYDROCHLORATHIAZIDE [Concomitant]
     Indication: HYPERTENSION
     Route: 048
  6. CRESTOR [Concomitant]
     Indication: DYSLIPIDAEMIA
     Route: 048
  7. VICTOZA [Concomitant]
     Indication: DIABETES MELLITUS
     Route: 058
  8. TRAZODONE HCL [Concomitant]
     Indication: DEPRESSION
     Dosage: ONCE NIGHTLY
     Route: 048

REACTIONS (2)
  - NEPHROLITHIASIS [None]
  - CYSTITIS [None]
